FAERS Safety Report 5288835-7 (Version None)
Quarter: 2007Q2

REPORT INFORMATION
  Report Type: 
  Country: None (occurrence: None)
  Receive Date: 20070405
  Receipt Date: 20070402
  Transmission Date: 20071010
  Serious: Yes (Other)
  Sender: FDA-Public Use
  Company Number: IE-MERCK-0704GBR00014

PATIENT
  Age: 69 Year
  Sex: Male

DRUGS (5)
  1. SINGULAIR [Suspect]
     Indication: ASTHMA
     Route: 048
  2. BUDESONIDE AND FORMOTEROL FUMARATE [Concomitant]
     Route: 065
  3. ALBUTEROL [Concomitant]
     Route: 065
  4. AMLODIPINE BESYLATE [Concomitant]
     Route: 065
  5. VALSARTAN [Concomitant]
     Route: 065

REACTIONS (4)
  - ASTHENIA [None]
  - EOSINOPHILIA [None]
  - NEURITIS [None]
  - RENAL IMPAIRMENT [None]
